FAERS Safety Report 6823711-7 (Version None)
Quarter: 2010Q3

REPORT INFORMATION
  Report Type: 
  Country: None (occurrence: None)
  Receive Date: 20100708
  Receipt Date: 20060822
  Transmission Date: 20110219
  Serious: No
  Sender: FDA-Public Use
  Company Number: US-PFIZER INC-2006103202

PATIENT
  Age: 53 Year
  Sex: Male
  Weight: 95.25 kg

DRUGS (6)
  1. CHANTIX [Suspect]
     Indication: SMOKING CESSATION THERAPY
     Dates: start: 20060101, end: 20060821
  2. WELLBUTRIN [Concomitant]
  3. ZYBAN [Concomitant]
  4. MONTELUKAST [Concomitant]
  5. AMBIEN [Concomitant]
  6. TAMSULOSIN HCL [Concomitant]

REACTIONS (1)
  - NAUSEA [None]
